FAERS Safety Report 10693517 (Version 1)
Quarter: 2015Q1

REPORT INFORMATION
  Report Type: Spontaneous
  Country: ES (occurrence: ES)
  Receive Date: 20150106
  Receipt Date: 20150106
  Transmission Date: 20150721
  Serious: Yes (Death, Hospitalization, Other)
  Sender: FDA-Public Use
  Company Number: ES-ABBVIE-15P-144-1328646-00

PATIENT
  Age: 57 Year
  Sex: Female

DRUGS (4)
  1. DOCETAXEL. [Interacting]
     Active Substance: DOCETAXEL
     Indication: NON-SMALL CELL LUNG CANCER
     Route: 042
     Dates: start: 20141013, end: 20141013
  2. NORVIR [Suspect]
     Active Substance: RITONAVIR
     Indication: HIV INFECTION
     Route: 048
     Dates: start: 2012, end: 20141020
  3. KIVEXA [Concomitant]
     Active Substance: ABACAVIR SULFATE\LAMIVUDINE
     Indication: HIV INFECTION
     Route: 048
     Dates: start: 2012, end: 20141020
  4. ATAZANAVIR [Interacting]
     Active Substance: ATAZANAVIR
     Indication: HIV INFECTION
     Route: 065
     Dates: start: 2012, end: 20141020

REACTIONS (2)
  - Drug interaction [Fatal]
  - Febrile neutropenia [Fatal]

NARRATIVE: CASE EVENT DATE: 20141020
